FAERS Safety Report 7139246-0 (Version None)
Quarter: 2010Q4

REPORT INFORMATION
  Report Type: 
  Country: None (occurrence: None)
  Receive Date: 20101206
  Receipt Date: 20101125
  Transmission Date: 20110411
  Serious: Yes (Other)
  Sender: FDA-Public Use
  Company Number: DE-ROCHE-745171

PATIENT
  Sex: Male

DRUGS (2)
  1. PEGASYS [Suspect]
     Indication: HEPATITIS
     Route: 065
     Dates: end: 20100801
  2. COPEGUS [Suspect]
     Indication: HEPATITIS
     Route: 065
     Dates: end: 20100801

REACTIONS (1)
  - TONGUE DISORDER [None]
